FAERS Safety Report 17061378 (Version 2)
Quarter: 2020Q1

REPORT INFORMATION
  Report Type: Spontaneous
  Country: US (occurrence: US)
  Receive Date: 20191121
  Receipt Date: 20200108
  Transmission Date: 20200409
  Serious: No
  Sender: FDA-Public Use
  Company Number: US-AMAG PHARMACEUTICALS, INC.-AMAG201905676

PATIENT
  Age: 29 Year
  Sex: Female
  Weight: 84.44 kg

DRUGS (8)
  1. PROMETRIUM [Concomitant]
     Active Substance: PROGESTERONE
     Indication: PRODUCT USED FOR UNKNOWN INDICATION
     Route: 048
  2. MAKENA [Suspect]
     Active Substance: HYDROXYPROGESTERONE CAPROATE
     Indication: PREMATURE DELIVERY
  3. MAKENA [Suspect]
     Active Substance: HYDROXYPROGESTERONE CAPROATE
     Indication: PREMATURE DELIVERY
  4. PRENATE MINI [Concomitant]
     Active Substance: .ALPHA.-TOCOPHEROL, DL-\ASCORBIC ACID\BIOTIN\CALCIUM CARBONATE\CHOLECALCIFEROL\CYANOCOBALAMIN\DOCONEXENT\FOLIC ACID\IRON PENTACARBONYL\LOWBUSH BLUEBERRY\MAGNESIUM OXIDE\POTASSIUM IODIDE\PYRIDOXINE HYDROCHLORIDE
     Indication: PREGNANCY
     Route: 065
     Dates: start: 20190919
  5. MAKENA [Suspect]
     Active Substance: HYDROXYPROGESTERONE CAPROATE
     Indication: PREMATURE DELIVERY
     Route: 058
     Dates: end: 20191029
  6. LOVENOX [Concomitant]
     Active Substance: ENOXAPARIN SODIUM
     Indication: COAGULOPATHY
     Dosage: 40MG DAILY. STARTED ^END OF XXAUG2019 OR BEGINNING OF XXSEP2019^.
     Route: 065
  7. PRENATAL VITAMINS [Concomitant]
     Active Substance: VITAMINS
     Indication: NUTRITIONAL SUPPLEMENTATION
  8. LAVENOX [Concomitant]
     Indication: FACTOR V LEIDEN CARRIER
     Route: 065
     Dates: start: 20190916

REACTIONS (7)
  - Injection site pruritus [Not Recovered/Not Resolved]
  - Injection site warmth [Unknown]
  - Mood altered [Recovered/Resolved]
  - Injection site nodule [Not Recovered/Not Resolved]
  - Morning sickness [Recovered/Resolved]
  - Injection site mass [Not Recovered/Not Resolved]
  - Injection site rash [Not Recovered/Not Resolved]

NARRATIVE: CASE EVENT DATE: 20191015
